FAERS Safety Report 5807287-9 (Version None)
Quarter: 2008Q3

REPORT INFORMATION
  Report Type: 
  Country: None (occurrence: None)
  Receive Date: 20080711
  Receipt Date: 20080701
  Transmission Date: 20090109
  Serious: Yes (Death)
  Sender: FDA-Public Use
  Company Number: JP-ABBOTT-08P-087-0460946-00

PATIENT
  Age: 76 Year
  Sex: Male

DRUGS (4)
  1. LEUPROLIDE ACETATE [Suspect]
     Indication: PROSTATE CANCER STAGE II
     Route: 058
     Dates: start: 20061215, end: 20070309
  2. BICALUTAMIDE [Concomitant]
     Indication: PROSTATE CANCER STAGE II
     Route: 048
     Dates: end: 20070504
  3. OXYCODONE HCL [Concomitant]
     Indication: COLON CANCER
     Route: 048
     Dates: start: 20061117, end: 20070504
  4. PROCHLORPERAZINE [Concomitant]
     Indication: COLON CANCER
     Route: 048
     Dates: start: 20061117, end: 20070504

REACTIONS (1)
  - COLON CANCER [None]
